FAERS Safety Report 7464452-5 (Version None)
Quarter: 2011Q2

REPORT INFORMATION
  Report Type: 
  Country: None (occurrence: None)
  Receive Date: 20110509
  Receipt Date: 20110503
  Transmission Date: 20111010
  Serious: No
  Sender: FDA-Public Use
  Company Number: US-PFIZER INC-2011072269

PATIENT
  Sex: Female
  Weight: 81.633 kg

DRUGS (3)
  1. TRIAMTERENE AND HYDROCHLOROTHIAZIDE [Concomitant]
     Dosage: UNK
  2. SERTRALINE HYDROCHLORIDE [Suspect]
     Indication: DEPRESSION
     Dosage: 100 MG, 1X/DAY
     Route: 048
     Dates: start: 20010101
  3. SERTRALINE HYDROCHLORIDE [Suspect]

REACTIONS (3)
  - VITAMIN D DECREASED [None]
  - BLOOD CHOLESTEROL INCREASED [None]
  - PRODUCT ODOUR ABNORMAL [None]
